FAERS Safety Report 20918154 (Version 8)
Quarter: 2023Q1

REPORT INFORMATION
  Report Type: Spontaneous
  Country: CA (occurrence: CA)
  Receive Date: 20220606
  Receipt Date: 20230316
  Transmission Date: 20230417
  Serious: Yes (Death, Life-Threatening, Other)
  Sender: FDA-Public Use
  Company Number: CA-CELLTRION INC.-2022CA000561

PATIENT

DRUGS (7)
  1. INFLECTRA [Suspect]
     Active Substance: INFLIXIMAB-DYYB
     Indication: Crohn^s disease
     Dosage: 500 MG, EVERY 7 WEEKS
     Route: 042
     Dates: start: 20220301
  2. INFLECTRA [Suspect]
     Active Substance: INFLIXIMAB-DYYB
     Dosage: 500 MG, EVERY 7 WEEKS
     Route: 042
     Dates: start: 20220321, end: 20220321
  3. INFLECTRA [Suspect]
     Active Substance: INFLIXIMAB-DYYB
     Dosage: 500 MG, EVERY 7 WEEKS
     Route: 042
     Dates: start: 20220531
  4. INFLECTRA [Suspect]
     Active Substance: INFLIXIMAB-DYYB
     Dosage: 500 MG, EVERY 7 WEEKS
     Route: 042
     Dates: start: 20220816
  5. INFLECTRA [Suspect]
     Active Substance: INFLIXIMAB-DYYB
     Dosage: 500 MG, EVERY 7 WEEKS
     Route: 042
     Dates: start: 20221031
  6. INFLECTRA [Suspect]
     Active Substance: INFLIXIMAB-DYYB
     Dosage: 500 MG, EVERY 7 WEEKS
     Route: 042
     Dates: start: 20230117
  7. INFLECTRA [Suspect]
     Active Substance: INFLIXIMAB-DYYB
     Dosage: 500 MG, EVERY 7 WEEKS
     Route: 042
     Dates: start: 20230117

REACTIONS (14)
  - Euthanasia [Fatal]
  - Pelvic mass [Unknown]
  - Intestinal obstruction [Recovered/Resolved]
  - Off label use [Unknown]
  - Intentional product use issue [Unknown]
  - Inappropriate schedule of product administration [Unknown]
  - Off label use [Unknown]
  - Product administration interrupted [Unknown]
  - Abdominal pain [Not Recovered/Not Resolved]
  - Pain [Unknown]
  - Blood pressure systolic increased [Recovered/Resolved]
  - Blood pressure fluctuation [Unknown]
  - Diarrhoea [Not Recovered/Not Resolved]
  - Arthralgia [Unknown]

NARRATIVE: CASE EVENT DATE: 20220301
